FAERS Safety Report 17346197 (Version 1)
Quarter: 2020Q1

REPORT INFORMATION
  Report Type: Spontaneous
  Country: US (occurrence: US)
  Receive Date: 20200114
  Receipt Date: 20200114
  Transmission Date: 20200409
  Serious: Yes (Disabling)
  Sender: FDA-Public Use
  Company Number: None

PATIENT
  Age: 84 Year
  Sex: Female
  Weight: 72.57 kg

DRUGS (6)
  1. REMERON [Suspect]
     Active Substance: MIRTAZAPINE
     Indication: DEPRESSION
     Dosage: ?          QUANTITY:1;?
     Route: 048
     Dates: start: 201804, end: 201810
  2. DAILY VIT [Concomitant]
  3. POTASSIUM [Concomitant]
     Active Substance: POTASSIUM
  4. PRILOSEC [Concomitant]
     Active Substance: OMEPRAZOLE MAGNESIUM
  5. LASIX [Concomitant]
     Active Substance: FUROSEMIDE
  6. CBD OIL [Concomitant]
     Active Substance: CANNABIDIOL\HERBALS

REACTIONS (2)
  - Therapy cessation [None]
  - Dyskinesia [None]

NARRATIVE: CASE EVENT DATE: 20180601
